FAERS Safety Report 8046031-4 (Version None)
Quarter: 2012Q1

REPORT INFORMATION
  Report Type: 
  Country: None (occurrence: None)
  Receive Date: 20120113
  Receipt Date: 20120103
  Transmission Date: 20120608
  Serious: Yes (Other)
  Sender: FDA-Public Use
  Company Number: US-PFIZER INC-2012001684

PATIENT
  Sex: Male

DRUGS (5)
  1. RELPAX [Suspect]
     Dosage: UNK
  2. PROTONIX [Suspect]
     Dosage: UNK
  3. NEURONTIN [Suspect]
     Dosage: UNK
  4. EFFEXOR XR [Suspect]
     Dosage: UNK
  5. LYRICA [Suspect]
     Dosage: UNK

REACTIONS (5)
  - NEOPLASM MALIGNANT [None]
  - SPINAL FUSION SURGERY [None]
  - BACK PAIN [None]
  - TESTICULAR PAIN [None]
  - MUSCLE SPASMS [None]
